FAERS Safety Report 4428344-8 (Version None)
Quarter: 2004Q3

REPORT INFORMATION
  Report Type: 
  Country: None (occurrence: None)
  Receive Date: 20040818
  Receipt Date: 20040806
  Transmission Date: 20050211
  Serious: Yes (Other)
  Sender: FDA-Public Use
  Company Number: US-JNJFOC-20040603954

PATIENT
  Sex: Female
  Weight: 53.52 kg

DRUGS (4)
  1. REMICADE [Suspect]
     Indication: RHEUMATOID ARTHRITIS
     Dosage: PATIENT ON INFLIXIMAB FOR THREE YEARS.
     Route: 042
  2. CELEBREX [Suspect]
     Indication: RHEUMATOID ARTHRITIS
  3. ASPIRIN [Suspect]
     Indication: DRUG USE FOR UNKNOWN INDICATION
  4. METHOTREXATE [Concomitant]
     Indication: RHEUMATOID ARTHRITIS

REACTIONS (4)
  - BLOOD URINE PRESENT [None]
  - DRUG TOXICITY [None]
  - RENAL PAPILLARY NECROSIS [None]
  - URETHRAL POLYP [None]
